FAERS Safety Report 25926216 (Version 1)
Quarter: 2025Q4

REPORT INFORMATION
  Report Type: Spontaneous
  Country: US (occurrence: None)
  Receive Date: 20251014
  Receipt Date: 20251014
  Transmission Date: 20260117
  Serious: Yes (Hospitalization)
  Sender: FDA-CTU
  Company Number: None

PATIENT
  Sex: Female

DRUGS (1)
  1. RINVOQ [Suspect]
     Active Substance: UPADACITINIB
     Indication: Arthralgia
     Dosage: 15 MG DAILY ORL
     Route: 048
     Dates: start: 20250514

REACTIONS (3)
  - Pulmonary embolism [None]
  - Muscle spasms [None]
  - Thrombosis [None]
